FAERS Safety Report 4452926-0 (Version None)
Quarter: 2004Q3

REPORT INFORMATION
  Report Type: 
  Country: None (occurrence: None)
  Receive Date: 20040916
  Receipt Date: 20040901
  Transmission Date: 20050211
  Serious: Yes (Hospitalization)
  Sender: FDA-Public Use
  Company Number: 2003-BP-02216RO

PATIENT
  Age: 72 Year
  Sex: Female

DRUGS (17)
  1. DEXAMETHASONE [Suspect]
     Indication: MULTIPLE MYELOMA
     Dosage: 40 MG/DAY (NR), PO
     Route: 048
     Dates: start: 20021010, end: 20021222
  2. PANTOPRAZOLE [Concomitant]
  3. MEPROBAMATE [Concomitant]
  4. DARBEPOETIN (DARBEPOETIN ALFA) [Concomitant]
  5. IRBESARTAN [WITH HYDROCHLOROTHIAZIDE] (IRBESARTAN) [Concomitant]
  6. [IRBESARTAN WITH] [Concomitant]
  7. CLONIDINE [Concomitant]
  8. DOCUSATE SODIUM [DOCUSATE SODIUM] [Concomitant]
  9. DAPSONE [Concomitant]
  10. PAROXETINE HCL [Concomitant]
  11. ALLOPURINOL [Concomitant]
  12. FENTANYL [Concomitant]
  13. OXYCODONE (OXYCODONE) [Concomitant]
  14. MULTIVITAMIN (MULTIVITAMINS) [Concomitant]
  15. ASPIRIN [Concomitant]
  16. PAMIDRONATE DISODIUM [Concomitant]
  17. ONDANSETRON HCL [Concomitant]

REACTIONS (9)
  - ANOREXIA [None]
  - HAEMOGLOBIN DECREASED [None]
  - LOBAR PNEUMONIA [None]
  - MALIGNANT NEOPLASM PROGRESSION [None]
  - MULTI-ORGAN FAILURE [None]
  - MULTIPLE MYELOMA [None]
  - NAUSEA [None]
  - OEDEMA PERIPHERAL [None]
  - SEPSIS [None]
